FAERS Safety Report 5384577-8 (Version None)
Quarter: 2007Q3

REPORT INFORMATION
  Report Type: 
  Country: None (occurrence: None)
  Receive Date: 20070711
  Receipt Date: 20070702
  Transmission Date: 20080115
  Serious: Yes (Death, Hospitalization, Other)
  Sender: FDA-Public Use
  Company Number: US-PFIZER INC-2006118908

PATIENT
  Sex: Male
  Weight: 104.3 kg

DRUGS (4)
  1. CELEBREX [Suspect]
     Indication: PAIN
     Dates: start: 19991001, end: 20030423
  2. BEXTRA [Suspect]
     Indication: PAIN
     Dates: start: 20011201, end: 20030423
  3. BEXTRA [Suspect]
     Indication: ARTHRITIS
  4. VIOXX [Suspect]
     Indication: ARTHRALGIA
     Dates: start: 19991001, end: 20030423

REACTIONS (2)
  - CARDIAC FAILURE CONGESTIVE [None]
  - MYOCARDIAL INFARCTION [None]
